FAERS Safety Report 15690911 (Version 1)
Quarter: 2018Q4

REPORT INFORMATION
  Report Type: Spontaneous
  Country: US (occurrence: US)
  Receive Date: 20181205
  Receipt Date: 20181205
  Transmission Date: 20190205
  Serious: Yes (Hospitalization)
  Sender: FDA-Public Use
  Company Number: US-SA-2018SA328534

PATIENT
  Age: 62 Year
  Sex: Male
  Weight: 84.35 kg

DRUGS (24)
  1. STERILE WATER [Concomitant]
     Active Substance: WATER
     Dosage: 120 ML RECON
     Route: 065
     Dates: start: 20180522
  2. SOLU-MEDROL [Concomitant]
     Active Substance: METHYLPREDNISOLONE SODIUM SUCCINATE
     Dosage: 125 MG, PRN
     Route: 065
     Dates: start: 20180522
  3. PROSCAR [Concomitant]
     Active Substance: FINASTERIDE
     Dosage: 5 MG, QD
     Route: 065
     Dates: start: 20150804
  4. DIPHENHYDRAMINE. [Concomitant]
     Active Substance: DIPHENHYDRAMINE
     Dosage: 25 MG, PRN
     Route: 065
     Dates: start: 20180522
  5. EPINEPHRINE. [Concomitant]
     Active Substance: EPINEPHRINE
     Dosage: 0.3 MG, PRN
     Route: 065
     Dates: start: 20180522
  6. EPLERENONE. [Concomitant]
     Active Substance: EPLERENONE
     Dosage: 25 MG, QD
     Route: 065
     Dates: start: 20150804
  7. CEREZYME [Suspect]
     Active Substance: IMIGLUCERASE
     Dosage: 4800 DF, QOW
     Route: 041
  8. SINGULAIR [Concomitant]
     Active Substance: MONTELUKAST SODIUM
     Dosage: 10 MG, QD
     Route: 065
     Dates: start: 20150804
  9. VESICARE [Concomitant]
     Active Substance: SOLIFENACIN SUCCINATE
     Dosage: 10 MG, QD
     Route: 065
     Dates: start: 20150804
  10. SODIUM CHLORIDE. [Concomitant]
     Active Substance: SODIUM CHLORIDE
     Dosage: 0.9%FLUSHING
     Route: 065
     Dates: start: 20180522
  11. WARFARIN SODIUM. [Concomitant]
     Active Substance: WARFARIN SODIUM
     Dosage: 3 MG, Q3W
     Route: 065
     Dates: start: 20170815
  12. VITAMIN D [COLECALCIFEROL] [Concomitant]
     Dosage: 800 DF, BID
     Route: 065
     Dates: start: 20180815
  13. CRESTOR [Concomitant]
     Active Substance: ROSUVASTATIN CALCIUM
     Dosage: 10 MG, QW
     Route: 065
     Dates: start: 20150804
  14. WARFARIN SODIUM. [Concomitant]
     Active Substance: WARFARIN SODIUM
     Dosage: 5 MG, Q5W
     Route: 065
     Dates: start: 20170815
  15. LOVAZA [Concomitant]
     Active Substance: OMEGA-3-ACID ETHYL ESTERS
     Dosage: 2 G, BID
     Route: 065
     Dates: start: 20150804
  16. ACETAMINOPHEN. [Concomitant]
     Active Substance: ACETAMINOPHEN
     Dosage: 650 MG, PRN
     Route: 065
     Dates: start: 20180522
  17. MAGNESIUM [Concomitant]
     Active Substance: MAGNESIUM
     Dosage: 500 MG, BID
     Route: 065
     Dates: start: 20170815
  18. CENTRUM PERFORMANCE [GINKGO BILOBA LEAF EXTRACT;MINERALS NOS;PANAX GIN [Concomitant]
     Dosage: 1 TABLET DAILY
     Route: 065
     Dates: start: 20150804
  19. NORMAL SALINE [Concomitant]
     Active Substance: SODIUM CHLORIDE
     Dosage: 0.9% DILUENT
     Route: 065
     Dates: start: 20180522
  20. CALCIUM + VIT D [Concomitant]
     Active Substance: CALCIUM\VITAMIN D
     Dosage: 630 MG, BID
     Route: 065
     Dates: start: 20170815
  21. EDARBYCLOR [Concomitant]
     Active Substance: AZILSARTAN KAMEDOXOMIL\CHLORTHALIDONE
     Dosage: 40-25 MG, QD
     Route: 065
     Dates: start: 20170815
  22. LANSOPRAZOLE. [Concomitant]
     Active Substance: LANSOPRAZOLE
     Dosage: 30 MG, QD
     Route: 065
     Dates: start: 20150804
  23. ALLOPURINOL. [Concomitant]
     Active Substance: ALLOPURINOL
     Dosage: 300 MG, QD
     Route: 065
     Dates: start: 20150804
  24. NIACIN. [Concomitant]
     Active Substance: NIACIN
     Dosage: 500 MG, QD
     Route: 065
     Dates: start: 20150804

REACTIONS (1)
  - Dizziness [Not Recovered/Not Resolved]

NARRATIVE: CASE EVENT DATE: 201811
